FAERS Safety Report 7852999-9 (Version None)
Quarter: 2011Q4

REPORT INFORMATION
  Report Type: 
  Country: None (occurrence: None)
  Receive Date: 20111026
  Receipt Date: 20111018
  Transmission Date: 20120403
  Serious: Yes (Other)
  Sender: FDA-Public Use
  Company Number: US-BAYER-2011-059887

PATIENT
  Age: 65 Year
  Sex: Male

DRUGS (2)
  1. NEXAVAR [Suspect]
     Indication: THYROID CANCER
     Dosage: 400 MG, BID
     Route: 048
     Dates: start: 20110511, end: 20110915
  2. NEXAVAR [Suspect]
     Dosage: 400 MG, BID
     Route: 048

REACTIONS (15)
  - PRURITUS [None]
  - PAIN [None]
  - HYPERKERATOSIS [None]
  - DYSGEUSIA [None]
  - PAIN OF SKIN [None]
  - ALOPECIA [None]
  - SKIN EXFOLIATION [None]
  - ASTHENIA [None]
  - ERYTHEMA [None]
  - NAUSEA [None]
  - PALMAR-PLANTAR ERYTHRODYSAESTHESIA SYNDROME [None]
  - OROPHARYNGEAL BLISTERING [None]
  - PAIN IN EXTREMITY [None]
  - MYALGIA [None]
  - BLISTER [None]
